FAERS Safety Report 19798357 (Version 1)
Quarter: 2021Q3

REPORT INFORMATION
  Report Type: Spontaneous
  Country: US (occurrence: US)
  Receive Date: 20210907
  Receipt Date: 20210907
  Transmission Date: 20211014
  Serious: No
  Sender: FDA-Public Use
  Company Number: US-PFIZER INC-2017283882

PATIENT
  Age: 78 Year

DRUGS (4)
  1. CELEBREX [Concomitant]
     Active Substance: CELECOXIB
     Indication: OSTEOARTHRITIS
     Dosage: 200 MG, 1X/DAY
     Route: 048
  2. CELEBREX [Concomitant]
     Active Substance: CELECOXIB
     Indication: BACK PAIN
  3. CELEBREX [Concomitant]
     Active Substance: CELECOXIB
     Indication: PAIN
  4. TOVIAZ [Suspect]
     Active Substance: FESOTERODINE FUMARATE
     Indication: STRESS URINARY INCONTINENCE
     Dosage: 8 MG, 1X/DAY
     Route: 048

REACTIONS (1)
  - Hypoacusis [Unknown]
